FAERS Safety Report 12318566 (Version 2)
Quarter: 2016Q2

REPORT INFORMATION
  Report Type: Spontaneous
  Country: US (occurrence: US)
  Receive Date: 20160429
  Receipt Date: 20160526
  Transmission Date: 20160815
  Serious: Yes (Other)
  Sender: FDA-Public Use
  Company Number: US-BAYER-2016-074939

PATIENT
  Sex: Female

DRUGS (1)
  1. CIPRO [Suspect]
     Active Substance: CIPROFLOXACIN HYDROCHLORIDE
     Indication: CYSTITIS
     Dosage: UNK

REACTIONS (10)
  - Pain of skin [None]
  - Abscess rupture [None]
  - Peripheral swelling [None]
  - Pain [None]
  - Furuncle [None]
  - Muscle spasms [None]
  - Muscular weakness [None]
  - Erythema [None]
  - Asthenia [None]
  - Wound secretion [None]
